FAERS Safety Report 7644680-6 (Version None)
Quarter: 2011Q3

REPORT INFORMATION
  Report Type: 
  Country: None (occurrence: None)
  Receive Date: 20110729
  Receipt Date: 20110721
  Transmission Date: 20111222
  Serious: Yes (Other)
  Sender: FDA-Public Use
  Company Number: US-AMGEN-USASP2011037239

PATIENT
  Age: 33 Year
  Sex: Female

DRUGS (1)
  1. ENBREL [Suspect]
     Indication: RHEUMATOID ARTHRITIS
     Dosage: 25 MG, QWK
     Dates: start: 20100226, end: 20110401

REACTIONS (16)
  - NASOPHARYNGITIS [None]
  - MEMORY IMPAIRMENT [None]
  - LETHARGY [None]
  - BRAIN NEOPLASM [None]
  - MALIGNANT MELANOMA [None]
  - RHEUMATOID ARTHRITIS [None]
  - HOT FLUSH [None]
  - PAIN [None]
  - URINARY RETENTION [None]
  - ABASIA [None]
  - RENAL PAIN [None]
  - THYROID DISORDER [None]
  - GASTROINTESTINAL CARCINOMA [None]
  - COLD SWEAT [None]
  - MOBILITY DECREASED [None]
  - INJECTION SITE PAIN [None]
